FAERS Safety Report 10785930 (Version 1)
Quarter: 2015Q1

REPORT INFORMATION
  Report Type: Spontaneous
  Country: US (occurrence: US)
  Receive Date: 20150211
  Receipt Date: 20150211
  Transmission Date: 20150721
  Serious: No
  Sender: FDA-Public Use
  Company Number: US-MYLANLABS-2014M1013524

PATIENT
  Age: 32 Year
  Sex: Female
  Weight: 63.49 kg

DRUGS (1)
  1. XULANE [Suspect]
     Active Substance: ETHINYL ESTRADIOL\NORELGESTROMIN
     Dosage: 150/35 ?G, QD; CHANGES QWK X 3, 1 WK OFF
     Route: 062
     Dates: start: 201408

REACTIONS (4)
  - Wrong technique in drug usage process [Not Recovered/Not Resolved]
  - Metrorrhagia [Recovered/Resolved]
  - Abdominal pain [Not Recovered/Not Resolved]
  - Alopecia [Not Recovered/Not Resolved]

NARRATIVE: CASE EVENT DATE: 2014
